FAERS Safety Report 6622080-5 (Version None)
Quarter: 2010Q1

REPORT INFORMATION
  Report Type: 
  Country: None (occurrence: None)
  Receive Date: 20100223
  Receipt Date: 20091210
  Transmission Date: 20100710
  Serious: No
  Sender: FDA-Public Use
  Company Number: 004080

PATIENT
  Sex: Female
  Weight: 52.5 kg

DRUGS (4)
  1. CIMZIA [Suspect]
     Indication: CROHN'S DISEASE
     Dosage: (400 MG, MONTHLY SUBCUTANEOUS)
     Route: 058
     Dates: start: 20090801
  2. SYNTHROID [Concomitant]
  3. FIORICET [Concomitant]
  4. ORAL CONTRACEPTIVE NOS [Concomitant]

REACTIONS (5)
  - ADVERSE DRUG REACTION [None]
  - AXILLARY PAIN [None]
  - BODY TEMPERATURE FLUCTUATION [None]
  - FATIGUE [None]
  - TENDERNESS [None]
